FAERS Safety Report 5027372-1 (Version None)
Quarter: 2006Q2

REPORT INFORMATION
  Report Type: 
  Country: None (occurrence: None)
  Receive Date: 20060615
  Receipt Date: 20060612
  Transmission Date: 20061013
  Serious: Yes (Hospitalization)
  Sender: FDA-Public Use
  Company Number: US-MERCK-0606USA02287

PATIENT
  Age: 54 Year
  Sex: Female

DRUGS (2)
  1. MAXALT [Suspect]
     Indication: MIGRAINE
     Route: 048
     Dates: start: 20040101, end: 20060601
  2. ESTROGENS (UNSPECIFIED) [Concomitant]
     Route: 065

REACTIONS (1)
  - RENAL ARTERY THROMBOSIS [None]
